FAERS Safety Report 9767572 (Version 1)
Quarter: 2013Q3

REPORT INFORMATION
  Report Type: Spontaneous
  Country: None (occurrence: None)
  Receive Date: 20130827
  Receipt Date: 20130827
  Transmission Date: 20140515
  Serious: Yes (Hospitalization)
  Sender: FDA-Public Use
  Company Number: 2013S1001613

PATIENT
  Age: 42 Year
  Sex: Male

DRUGS (4)
  1. LIVALO (PITAVASTATIN) TABLETS 2 MG [Suspect]
     Indication: ACUTE MYOCARDIAL INFARCTION
     Route: 048
     Dates: start: 20111216
  2. ASPIRIN [Concomitant]
  3. CLOPIDOGREL [Concomitant]
  4. CANDESARTAN [Concomitant]

REACTIONS (3)
  - Dyspnoea [None]
  - Cough [None]
  - Productive cough [None]
